FAERS Safety Report 6163328-3 (Version None)
Quarter: 2009Q2

REPORT INFORMATION
  Report Type: 
  Country: None (occurrence: None)
  Receive Date: 20090420
  Receipt Date: 20090420
  Transmission Date: 20091009
  Serious: No
  Sender: FDA-Public Use
  Company Number: None

PATIENT
  Age: 65 Year
  Sex: Male
  Weight: 68.3 kg

DRUGS (6)
  1. VARENICLINE [Suspect]
     Indication: SMOKING CESSATION THERAPY
     Dosage: 1 MG BID PO
     Route: 048
     Dates: start: 20070305, end: 20070927
  2. ATENOLOL [Concomitant]
  3. LAC-HYDRIN [Concomitant]
  4. LISINOPRIL [Concomitant]
  5. PRAMOXINE [Concomitant]
  6. SIMVASTATIN [Concomitant]

REACTIONS (1)
  - MENTAL DISORDER [None]
